FAERS Safety Report 9966156 (Version 2)
Quarter: 2014Q1

REPORT INFORMATION
  Report Type: Report from Study
  Country: US (occurrence: US)
  Receive Date: 20140305
  Receipt Date: 20140305
  Transmission Date: 20141002
  Serious: Yes (Other)
  Sender: FDA-Public Use
  Company Number: US-ABBVIE-13P-163-1102995-00

PATIENT
  Age: 60 Year
  Sex: Female

DRUGS (14)
  1. HUMIRA [Suspect]
     Indication: CROHN^S DISEASE
     Route: 058
     Dates: start: 2010
  2. HUMIRA [Suspect]
     Indication: PSORIATIC ARTHROPATHY
  3. HUMIRA [Suspect]
     Indication: CROHN^S DISEASE
     Route: 058
     Dates: start: 20130605, end: 20130605
  4. HUMIRA [Suspect]
     Route: 058
     Dates: start: 20130606, end: 20130606
  5. HUMIRA [Suspect]
     Route: 058
     Dates: start: 20130620, end: 20130620
  6. HUMIRA [Suspect]
     Dates: start: 20130716
  7. ATACAND HCT [Concomitant]
     Indication: HYPERTENSION
     Route: 048
  8. LEVOTHROID [Concomitant]
     Indication: HYPOTHYROIDISM
     Route: 048
  9. ALIGN [Concomitant]
     Indication: CROHN^S DISEASE
     Route: 048
  10. EQL OMEGA 3 FISH OIL [Concomitant]
     Indication: PRODUCT USED FOR UNKNOWN INDICATION
     Dosage: SOFTGEL
     Route: 048
  11. ENTOCORT EC [Concomitant]
     Indication: CROHN^S DISEASE
     Route: 048
  12. BUDESONIDE [Concomitant]
     Indication: PRODUCT USED FOR UNKNOWN INDICATION
  13. VIT C [Concomitant]
     Indication: VITAMIN SUPPLEMENTATION
     Route: 048
  14. VIT D3 [Concomitant]
     Indication: VITAMIN SUPPLEMENTATION
     Route: 048

REACTIONS (19)
  - Squamous cell carcinoma [Not Recovered/Not Resolved]
  - Injury associated with device [Unknown]
  - Rash papular [Unknown]
  - Headache [Recovered/Resolved]
  - Injection site bruising [Unknown]
  - Injection site pain [Unknown]
  - Upper respiratory tract infection [Unknown]
  - Sinusitis [Unknown]
  - Pain in jaw [Unknown]
  - Oropharyngeal pain [Unknown]
  - Muscular weakness [Unknown]
  - Injection site rash [Recovered/Resolved]
  - Injection site erythema [Not Recovered/Not Resolved]
  - Injection site swelling [Not Recovered/Not Resolved]
  - Injection site pruritus [Not Recovered/Not Resolved]
  - Injection site rash [Not Recovered/Not Resolved]
  - Injection site pain [Recovered/Resolved]
  - Wrong technique in drug usage process [Recovered/Resolved]
  - Incorrect dose administered [Recovered/Resolved]
